FAERS Safety Report 7085929-0 (Version None)
Quarter: 2010Q4

REPORT INFORMATION
  Report Type: 
  Country: None (occurrence: None)
  Receive Date: 20101105
  Receipt Date: 20101025
  Transmission Date: 20110411
  Serious: Yes (Hospitalization)
  Sender: FDA-Public Use
  Company Number: US-ACTELION-A-NJ2010-41067

PATIENT

DRUGS (3)
  1. ILOPROST INHALATION SOLUTION UNKNOWN US [Suspect]
     Indication: PULMONARY ARTERIAL HYPERTENSION
     Dosage: UNK
     Route: 055
     Dates: start: 20100907
  2. TRACLEER [Concomitant]
     Indication: PULMONARY ARTERIAL HYPERTENSION
     Dosage: UNK
     Route: 048
     Dates: start: 20100128
  3. REVATIO [Concomitant]

REACTIONS (6)
  - ASTHENIA [None]
  - COUGH [None]
  - DYSPNOEA [None]
  - HAEMATEMESIS [None]
  - PAIN [None]
  - PYREXIA [None]
